FAERS Safety Report 5626788-X (Version None)
Quarter: 2008Q1

REPORT INFORMATION
  Report Type: 
  Country: None (occurrence: None)
  Receive Date: 20080214
  Receipt Date: 20080205
  Transmission Date: 20080703
  Serious: Yes (Death)
  Sender: FDA-Public Use
  Company Number: DE-PFIZER INC-2008011962

PATIENT
  Sex: Female

DRUGS (43)
  1. COMBACTAM [Suspect]
     Route: 042
     Dates: start: 20050127, end: 20050215
  2. DIFLUCAN [Suspect]
     Indication: FUNGAL INFECTION
     Route: 042
     Dates: start: 20050131, end: 20050210
  3. ALBUMIN (HUMAN) [Suspect]
     Route: 042
     Dates: start: 20050203, end: 20050210
  4. MIDAZOLAM HCL [Suspect]
     Route: 042
     Dates: start: 20050201, end: 20050213
  5. SUFENTANIL CITRATE [Suspect]
     Route: 042
     Dates: start: 20050203, end: 20050213
  6. PIPERACILLIN [Suspect]
     Route: 042
     Dates: start: 20050127, end: 20050215
  7. HEPARIN [Suspect]
     Route: 042
     Dates: start: 20050128, end: 20050216
  8. ASPIRIN [Suspect]
     Route: 042
     Dates: start: 20050128, end: 20050216
  9. DOBUTAMINE HCL [Suspect]
     Route: 042
     Dates: start: 20050126, end: 20050217
  10. VANCOMYCIN [Suspect]
     Route: 042
  11. FLUIMUCIL [Suspect]
     Route: 042
     Dates: start: 20050126, end: 20050302
  12. ALL OTHER THERAPEUTIC PRODUCTS [Suspect]
     Route: 042
     Dates: start: 20050201, end: 20050302
  13. INSULIN [Suspect]
     Route: 042
  14. NOREPINEPHRINE BITARTRATE [Suspect]
     Route: 042
  15. OMEPRAZOLE [Suspect]
     Route: 042
  16. CALCIUM [Suspect]
     Route: 042
     Dates: start: 20050201, end: 20050215
  17. CALCIUM [Suspect]
     Dates: start: 20050204, end: 20050216
  18. FUROSEMIDE [Suspect]
     Route: 042
     Dates: start: 20050204, end: 20050216
  19. ERYTHROMYCIN [Suspect]
     Route: 042
     Dates: start: 20050205, end: 20050207
  20. METOCLOPRAMIDE [Suspect]
     Route: 042
     Dates: start: 20050205, end: 20050219
  21. NUTRISON [Suspect]
     Route: 048
     Dates: start: 20050205, end: 20050224
  22. GLUCOSE [Suspect]
     Route: 042
     Dates: start: 20050207, end: 20050218
  23. OSYROL [Suspect]
     Route: 042
  24. THOMAEAMIN [Suspect]
     Route: 042
     Dates: start: 20050207, end: 20050218
  25. CASPOFUNGIN [Suspect]
     Route: 042
     Dates: start: 20050209, end: 20050215
  26. PIRITRAMIDE [Suspect]
     Route: 042
     Dates: start: 20050214, end: 20050216
  27. NOVALGIN [Suspect]
     Route: 042
     Dates: start: 20050217, end: 20050226
  28. CLEXANE [Suspect]
     Route: 058
  29. PERIAMIN X [Suspect]
     Route: 042
     Dates: start: 20050224, end: 20050224
  30. HYDROCORTISONE [Concomitant]
     Route: 042
     Dates: start: 20050202, end: 20050206
  31. BERODUAL [Concomitant]
     Dates: start: 20050201, end: 20050206
  32. CLINOMEL [Concomitant]
     Route: 042
     Dates: start: 20050131, end: 20050206
  33. KONAKION [Concomitant]
     Route: 042
     Dates: start: 20050207, end: 20050207
  34. METRONIDAZOLE HCL [Concomitant]
     Route: 042
  35. TAVANIC [Concomitant]
     Route: 042
  36. CYANOCOBALAMIN [Concomitant]
     Route: 042
     Dates: start: 20050225, end: 20050227
  37. FERRLECIT [Concomitant]
     Route: 042
  38. FOLSAN [Concomitant]
     Route: 042
  39. BELOC [Concomitant]
     Route: 042
  40. POTASSIUM CHLORIDE [Concomitant]
     Route: 042
  41. ALL OTHER THERAPEUTIC PRODUCTS [Concomitant]
     Route: 042
  42. TAVEGIL [Concomitant]
     Route: 042
     Dates: start: 20050303, end: 20050303
  43. ALL OTHER THERAPEUTIC PRODUCTS [Concomitant]
     Route: 048

REACTIONS (2)
  - STEVENS-JOHNSON SYNDROME [None]
  - TOXIC EPIDERMAL NECROLYSIS [None]
